FAERS Safety Report 15839435 (Version 6)
Quarter: 2022Q1

REPORT INFORMATION
  Report Type: Spontaneous
  Country: FR (occurrence: FR)
  Receive Date: 20190117
  Receipt Date: 20220331
  Transmission Date: 20220423
  Serious: Yes (Hospitalization)
  Sender: FDA-Public Use
  Company Number: None

PATIENT
  Age: 92 Year
  Sex: Female
  Weight: 67.6 kg

DRUGS (15)
  1. RILMENIDINE [Suspect]
     Active Substance: RILMENIDINE
     Indication: Hypertension
     Dosage: 2 MILLIGRAM, QD (2 MG, QD)
     Route: 048
  2. RILMENIDINE [Suspect]
     Active Substance: RILMENIDINE
     Dosage: 2 MILLIGRAM, QD
     Route: 048
  3. RAMIPRIL [Interacting]
     Active Substance: RAMIPRIL
     Indication: Hypertension
     Dosage: 5 MILLIGRAM, QD
     Route: 048
     Dates: end: 20180504
  4. RAMIPRIL [Interacting]
     Active Substance: RAMIPRIL
     Dosage: 5 MILLIGRAM, QD (5 MG, QD)
     Route: 048
     Dates: end: 20180504
  5. POTASSIUM CHLORIDE [Interacting]
     Active Substance: POTASSIUM CHLORIDE
     Indication: Hypokalaemia
     Dosage: 1 DOSAGE FORM, QD
     Route: 048
     Dates: end: 20180504
  6. NICARDIPINE HYDROCHLORIDE [Suspect]
     Active Substance: NICARDIPINE HYDROCHLORIDE
     Indication: Hypertension
     Dosage: 2 DOSAGE FORM, QD,(2 DF, DAILY  )
     Route: 048
     Dates: end: 20180504
  7. HYDROCHLOROTHIAZIDE\POTASSIUM CHLORIDE [Suspect]
     Active Substance: HYDROCHLOROTHIAZIDE\POTASSIUM CHLORIDE
     Indication: Hypertension
     Dosage: 1 DOSAGE FORM, QD (1 DF, DAILY )
     Route: 048
     Dates: start: 201804, end: 20180504
  8. URAPIDIL [Suspect]
     Active Substance: URAPIDIL
     Indication: Hypertension
     Dosage: 2 DOSAGE FORM, QD (2 DF, DAILY   )
     Route: 048
  9. URAPIDIL [Suspect]
     Active Substance: URAPIDIL
     Indication: Hypertension
     Dosage: 2 DOSAGE FORM, QD (2 DF, QD)
     Route: 048
  10. HYDROCHLOROTHIAZIDE\POTASSIUM CHLORIDE [Suspect]
     Active Substance: HYDROCHLOROTHIAZIDE\POTASSIUM CHLORIDE
     Indication: Hypertension
     Dosage: 1 DOSAGE FORM, QD(~1 DF, QD)
     Dates: start: 201804, end: 20180504
  11. NICARDIPINE [Suspect]
     Active Substance: NICARDIPINE
     Indication: Hypertension
     Dosage: 2 DOSAGE FORM, QD
     Route: 048
  12. POTASSIUM CHLORIDE [Interacting]
     Active Substance: POTASSIUM CHLORIDE
     Indication: Hypokalaemia
     Dosage: 1 DOSAGE FORM, QD
     Route: 048
  13. HYDROCHLOROTHIAZIDE [Suspect]
     Active Substance: HYDROCHLOROTHIAZIDE
     Indication: Hypertension
     Dosage: 1 DOSAGE FORM, QD
     Route: 048
  14. MOVICOL [Concomitant]
     Active Substance: POLYETHYLENE GLYCOL 3350\POTASSIUM CHLORIDE\SODIUM BICARBONATE\SODIUM CHLORIDE
     Indication: Product used for unknown indication
     Dosage: UNK
     Route: 065
  15. KARDEGIC [Concomitant]
     Active Substance: ASPIRIN DL-LYSINE
     Indication: Product used for unknown indication
     Dosage: UNK
     Route: 065

REACTIONS (5)
  - Fall [Recovered/Resolved with Sequelae]
  - Hyperkalaemia [Recovered/Resolved]
  - Acute kidney injury [Recovered/Resolved]
  - Labelled drug-drug interaction medication error [Unknown]
  - Drug interaction [Unknown]

NARRATIVE: CASE EVENT DATE: 20180429
